FAERS Safety Report 24899857 (Version 1)
Quarter: 2025Q1

REPORT INFORMATION
  Report Type: Spontaneous
  Country: GB (occurrence: GB)
  Receive Date: 20250129
  Receipt Date: 20250129
  Transmission Date: 20250409
  Serious: Yes (Other)
  Sender: ELI LILLY AND COMPANY
  Company Number: None

PATIENT
  Age: 26 Year
  Sex: Female
  Weight: 90 kg

DRUGS (1)
  1. MOUNJARO [Suspect]
     Active Substance: TIRZEPATIDE
     Indication: Product used for unknown indication
     Route: 065
     Dates: start: 20250115

REACTIONS (4)
  - Myalgia [Not Recovered/Not Resolved]
  - Tenderness [Not Recovered/Not Resolved]
  - Pain of skin [Unknown]
  - Discomfort [Unknown]

NARRATIVE: CASE EVENT DATE: 20250116
